FAERS Safety Report 8885906 (Version 1)
Quarter: 2012Q4

REPORT INFORMATION
  Report Type: 
  Country: FR (occurrence: FR)
  Receive Date: 20121102
  Receipt Date: 20121102
  Transmission Date: 20130627
  Serious: Yes (Other)
  Sender: FDA-Public Use
  Company Number: FR-JNJFOC-20121014929

PATIENT
  Age: 48 Year
  Sex: Male

DRUGS (4)
  1. INTELENCE [Suspect]
     Indication: HIV INFECTION
     Route: 048
     Dates: start: 20110307
  2. TRUVADA [Suspect]
     Indication: HIV INFECTION
     Route: 048
     Dates: start: 20110307, end: 20120808
  3. REBETOL [Concomitant]
     Route: 065
  4. VIRAFERONPEG [Concomitant]
     Route: 065

REACTIONS (1)
  - Haemarthrosis [Recovered/Resolved with Sequelae]
